FAERS Safety Report 9832457 (Version 2)
Quarter: 2014Q1

REPORT INFORMATION
  Report Type: Report from Study
  Country: CA (occurrence: CA)
  Receive Date: 20140121
  Receipt Date: 20140203
  Transmission Date: 20141002
  Serious: Yes (Death, Other)
  Sender: FDA-Public Use
  Company Number: CA-JNJFOC-20140107545

PATIENT
  Age: 60 Year
  Sex: Female
  Weight: 64 kg

DRUGS (12)
  1. REMICADE [Suspect]
     Indication: CROHN^S DISEASE
     Route: 042
     Dates: start: 200505
  2. COUMADIN [Concomitant]
     Route: 065
  3. IMURAN [Concomitant]
     Route: 065
  4. PARIET [Concomitant]
     Route: 065
  5. MOTILIUM [Concomitant]
     Route: 065
  6. LASIX [Concomitant]
     Route: 065
  7. SENOKOT [Concomitant]
     Route: 065
  8. CRESTOR [Concomitant]
     Route: 065
  9. ATARAX [Concomitant]
     Route: 065
  10. RINOCORT [Concomitant]
     Route: 065
  11. LORAZEPAM [Concomitant]
     Route: 065
  12. HYDRO DP [Concomitant]
     Route: 048

REACTIONS (6)
  - Dyspnoea [Not Recovered/Not Resolved]
  - Syncope [Not Recovered/Not Resolved]
  - Heart valve incompetence [Unknown]
  - Death [Fatal]
  - Diarrhoea [Recovered/Resolved]
  - Abdominal pain [Recovered/Resolved]
